FAERS Safety Report 11346257 (Version 1)
Quarter: 2015Q3

REPORT INFORMATION
  Report Type: Spontaneous
  Country: US (occurrence: US)
  Receive Date: 20150803
  Receipt Date: 20150803
  Transmission Date: 20151125
  Serious: No
  Sender: FDA-Public Use
  Company Number: US-ELI_LILLY_AND_COMPANY-US201005003077

PATIENT
  Age: 11 Year
  Sex: Male
  Weight: 43.08 kg

DRUGS (1)
  1. STRATTERA [Suspect]
     Active Substance: ATOMOXETINE HYDROCHLORIDE
     Indication: ATTENTION DEFICIT/HYPERACTIVITY DISORDER
     Dosage: 10 MG, UNK
     Dates: start: 2010

REACTIONS (10)
  - Crying [Recovered/Resolved]
  - Memory impairment [Unknown]
  - Thinking abnormal [Recovered/Resolved]
  - Aggression [Recovered/Resolved]
  - Agitation [Recovered/Resolved]
  - Tremor [Recovered/Resolved]
  - Abdominal pain upper [Recovered/Resolved]
  - Headache [Recovered/Resolved]
  - Abnormal behaviour [Recovered/Resolved]
  - Drug ineffective [Recovered/Resolved]

NARRATIVE: CASE EVENT DATE: 2010
